FAERS Safety Report 13982620 (Version 1)
Quarter: 2017Q3

REPORT INFORMATION
  Report Type: Spontaneous
  Country: US (occurrence: US)
  Receive Date: 20170918
  Receipt Date: 20170918
  Transmission Date: 20171128
  Serious: No
  Sender: FDA-Public Use
  Company Number: US-LEADIANT BIOSCIENCES INC-2016STPI000780

PATIENT
  Age: 42 Year
  Sex: Female

DRUGS (3)
  1. MATULANE [Suspect]
     Active Substance: PROCARBAZINE HYDROCHLORIDE
     Indication: BRAIN NEOPLASM MALIGNANT
     Dosage: 150 MG, OTHER
     Route: 048
     Dates: start: 20160809
  2. LOMUSTINE. [Concomitant]
     Active Substance: LOMUSTINE
  3. TRAZODONE [Concomitant]
     Active Substance: TRAZODONE HYDROCHLORIDE
     Dosage: 5 UNK, UNK
     Route: 048

REACTIONS (3)
  - Nausea [Not Recovered/Not Resolved]
  - Abdominal pain [Unknown]
  - Oral pain [Unknown]

NARRATIVE: CASE EVENT DATE: 201608
